FAERS Safety Report 5678270-1 (Version None)
Quarter: 2008Q1

REPORT INFORMATION
  Report Type: 
  Country: None (occurrence: None)
  Receive Date: 20080324
  Receipt Date: 20080324
  Transmission Date: 20080703
  Serious: Yes (Hospitalization, Disabling, Other)
  Sender: FDA-Public Use
  Company Number: None

PATIENT
  Age: 48 Year
  Sex: Male
  Weight: 81.6475 kg

DRUGS (1)
  1. CHANTIX [Suspect]
     Indication: SMOKING CESSATION THERAPY
     Dosage: A PILL DAILY PO
     Route: 048
     Dates: start: 20070315, end: 20070515

REACTIONS (7)
  - AFFECT LABILITY [None]
  - ALCOHOL USE [None]
  - DEPRESSION [None]
  - EMOTIONAL DISTRESS [None]
  - IMPAIRED WORK ABILITY [None]
  - OVERDOSE [None]
  - SUICIDE ATTEMPT [None]
